FAERS Safety Report 16270333 (Version 1)
Quarter: 2019Q2

REPORT INFORMATION
  Report Type: Spontaneous
  Country: US (occurrence: US)
  Receive Date: 20190329
  Receipt Date: 20190329
  Transmission Date: 20190711
  Serious: No
  Sender: FDA-Public Use
  Company Number: None

PATIENT
  Age: 72 Year
  Sex: Female

DRUGS (1)
  1. BEXAROTENE 75MG MYLAN [Suspect]
     Active Substance: BEXAROTENE
     Route: 048
     Dates: start: 20180920

REACTIONS (2)
  - Blister [None]
  - Arthralgia [None]

NARRATIVE: CASE EVENT DATE: 20180920
